FAERS Safety Report 4626792-4 (Version None)
Quarter: 2005Q2

REPORT INFORMATION
  Report Type: 
  Country: None (occurrence: None)
  Receive Date: 20050401
  Receipt Date: 20050401
  Transmission Date: 20051028
  Serious: Yes (Death)
  Sender: FDA-Public Use
  Company Number: None

PATIENT
  Age: 67 Year
  Sex: Male

DRUGS (1)
  1. ALTEPLASE 50MG GENENTECH [Suspect]
     Indication: CEREBRAL ISCHAEMIA
     Dosage: 30MG X1 INTRA-ARTERIAL
     Route: 013
     Dates: start: 20050323, end: 20050323

REACTIONS (2)
  - BRAIN STEM HAEMORRHAGE [None]
  - PUPIL FIXED [None]
